FAERS Safety Report 8422567-9 (Version None)
Quarter: 2012Q2

REPORT INFORMATION
  Report Type: 
  Country: None (occurrence: None)
  Receive Date: 20120608
  Receipt Date: 20120529
  Transmission Date: 20120825
  Serious: Yes (Death, Hospitalization, Other)
  Sender: FDA-Public Use
  Company Number: AU-JNJFOC-20120506778

PATIENT
  Sex: Male

DRUGS (4)
  1. FOLIC ACID [Concomitant]
     Indication: RHEUMATOID ARTHRITIS
     Route: 048
     Dates: start: 20110819, end: 20120425
  2. SIMPONI [Suspect]
     Indication: RHEUMATOID ARTHRITIS
     Route: 058
     Dates: start: 20120313, end: 20120413
  3. ALLOPURINOL [Concomitant]
     Indication: GOUT
     Route: 048
     Dates: end: 20120420
  4. METHOTREXATE [Suspect]
     Indication: RHEUMATOID ARTHRITIS
     Route: 048
     Dates: start: 20110819, end: 20120420

REACTIONS (6)
  - MULTI-ORGAN FAILURE [None]
  - SPLENOMEGALY [None]
  - T-CELL LYMPHOMA [None]
  - PYREXIA [None]
  - MALAISE [None]
  - HYPOTENSION [None]
